FAERS Safety Report 12111716 (Version 1)
Quarter: 2016Q1

REPORT INFORMATION
  Report Type: Spontaneous
  Country: US (occurrence: US)
  Receive Date: 20160224
  Receipt Date: 20160224
  Transmission Date: 20160526
  Serious: No
  Sender: FDA-Public Use
  Company Number: US-JAZZ-2015-US-014929

PATIENT
  Age: 27 Year
  Sex: Female

DRUGS (15)
  1. PRIALT [Suspect]
     Active Substance: ZICONOTIDE ACETATE
     Indication: PAIN
     Dosage: 0.083 ?G, QH
     Route: 037
  2. PRIALT [Suspect]
     Active Substance: ZICONOTIDE ACETATE
     Dosage: 0.02 ?G, QH
     Route: 037
     Dates: end: 20151007
  3. FENTANYL. [Suspect]
     Active Substance: FENTANYL
     Dosage: 0.4 ?G, QH
     Route: 037
     Dates: end: 20151007
  4. BACLOFEN. [Suspect]
     Active Substance: BACLOFEN
     Indication: PAIN
     Dosage: 7.0 ?G, QH
     Route: 037
  5. CLONIDINE. [Suspect]
     Active Substance: CLONIDINE
     Dosage: 2.5 ?G, QH
  6. FENTANYL. [Suspect]
     Active Substance: FENTANYL
     Indication: PAIN
     Dosage: 1.7 ?G, QH
     Route: 037
  7. FENTANYL. [Suspect]
     Active Substance: FENTANYL
     Dosage: 3.75 ?G, QH
     Route: 037
  8. CLONIDINE. [Suspect]
     Active Substance: CLONIDINE
     Dosage: 0.8 ?G, QH
     Dates: end: 20151007
  9. DILAUDID [Suspect]
     Active Substance: HYDROMORPHONE HYDROCHLORIDE
     Indication: PAIN
     Dosage: 0.033 MG, QH
     Route: 037
  10. CLONIDINE. [Suspect]
     Active Substance: CLONIDINE
     Indication: PAIN
     Dosage: 3.33 ?G, QH
     Route: 037
  11. BACLOFEN. [Suspect]
     Active Substance: BACLOFEN
     Dosage: 0.02 ?G, QH
     Route: 037
     Dates: end: 20151007
  12. DILAUDID [Suspect]
     Active Substance: HYDROMORPHONE HYDROCHLORIDE
     Dosage: 0.008 MG, QH
     Route: 037
     Dates: end: 20151007
  13. DILAUDID [Suspect]
     Active Substance: HYDROMORPHONE HYDROCHLORIDE
     Dosage: 0.075 MG, QH
     Route: 037
  14. PRIALT [Suspect]
     Active Substance: ZICONOTIDE ACETATE
     Dosage: 0.25 ?G, QH
     Route: 037
     Dates: end: 20151007
  15. BACLOFEN. [Suspect]
     Active Substance: BACLOFEN
     Dosage: 8.0 ?G, QH
     Route: 037

REACTIONS (4)
  - Device issue [Recovered/Resolved]
  - Road traffic accident [Unknown]
  - Pain [Unknown]
  - Gait disturbance [Unknown]

NARRATIVE: CASE EVENT DATE: 2015
